FAERS Safety Report 13107293 (Version 1)
Quarter: 2017Q1

REPORT INFORMATION
  Report Type: Spontaneous
  Country: JP (occurrence: JP)
  Receive Date: 20170112
  Receipt Date: 20170112
  Transmission Date: 20170428
  Serious: Yes (Hospitalization, Other)
  Sender: FDA-Public Use
  Company Number: JP-AMGEN-JPNSP2016004603

PATIENT
  Age: 54 Year
  Sex: Female
  Weight: 51 kg

DRUGS (11)
  1. GRAN [Suspect]
     Active Substance: FILGRASTIM
     Indication: NEUTROPHIL COUNT DECREASED
     Dosage: 150 MUG, QD
     Route: 058
     Dates: start: 20151222, end: 20151223
  2. AMINOFLUID [Concomitant]
     Dosage: 500 ML, QD
     Route: 041
     Dates: start: 20151223, end: 20151223
  3. AMINOFLUID [Concomitant]
     Indication: DECREASED APPETITE
     Dosage: 500 ML, QD
     Route: 041
     Dates: start: 20151222, end: 20151227
  4. LENDORMIN [Concomitant]
     Active Substance: BROTIZOLAM
     Indication: INSOMNIA
     Dosage: 0.25 MG, QD
     Route: 048
     Dates: start: 20151222, end: 20160104
  5. CYCLOPHOSPHAMIDE. [Suspect]
     Active Substance: CYCLOPHOSPHAMIDE
     Indication: BREAST CANCER
     Dosage: UNK
     Route: 041
  6. MAXIPIME [Suspect]
     Active Substance: CEFEPIME HYDROCHLORIDE
     Dosage: 2 G, BID
     Route: 041
     Dates: start: 20151222, end: 20151223
  7. MAXIPIME [Suspect]
     Active Substance: CEFEPIME HYDROCHLORIDE
     Indication: FEBRILE NEUTROPENIA
     Dosage: UNK
     Route: 042
     Dates: start: 20151212, end: 20151218
  8. MAXIPIME [Suspect]
     Active Substance: CEFEPIME HYDROCHLORIDE
     Dosage: 2 G, QD
     Route: 041
     Dates: start: 20151224, end: 20151224
  9. PENTCILLIN [Concomitant]
     Active Substance: PIPERACILLIN SODIUM
     Indication: FEBRILE NEUTROPENIA
     Dosage: 2 G, BID
     Route: 041
     Dates: start: 20151224, end: 20151227
  10. EPIRUBICIN HYDROCHLORIDE. [Suspect]
     Active Substance: EPIRUBICIN HYDROCHLORIDE
     Indication: BREAST CANCER
     Dosage: UNK
     Route: 041
  11. LACTEC                             /00490001/ [Concomitant]
     Indication: DECREASED APPETITE
     Dosage: 500 ML, QD
     Route: 041
     Dates: start: 20151222, end: 20151225

REACTIONS (2)
  - Febrile neutropenia [Recovered/Resolved]
  - Drug eruption [Recovered/Resolved]

NARRATIVE: CASE EVENT DATE: 20151217
